FAERS Safety Report 8394076-7 (Version None)
Quarter: 2012Q1

REPORT INFORMATION
  Report Type: 
  Country: None (occurrence: None)
  Receive Date: 20120323
  Receipt Date: 20110506
  Transmission Date: 20120608
  Serious: Yes (Other)
  Sender: FDA-Public Use
  Company Number: 163-21880-11050855

PATIENT
  Age: 86 Year
  Sex: Female
  Weight: 53.978 kg

DRUGS (7)
  1. REVLIMID [Suspect]
     Indication: MULTIPLE MYELOMA
     Dosage: 10 MG, 1 IN 1 D, PO
     Route: 048
     Dates: start: 20110415
  2. DURAGESIC (FENTANYL) (POULTICE OR PATCH) [Concomitant]
  3. MORPHINE [Concomitant]
  4. DEXAMETHASONE [Concomitant]
  5. ASPIRIN [Concomitant]
  6. OXYCODONE (OXYCODONE) (UNKNOWN) [Concomitant]
  7. MIRALAX (MACROGOL) (UNKNOWN) [Concomitant]

REACTIONS (1)
  - HIP FRACTURE [None]
